FAERS Safety Report 14475799 (Version 1)
Quarter: 2018Q1

REPORT INFORMATION
  Report Type: Spontaneous
  Country: DE (occurrence: DE)
  Receive Date: 20180201
  Receipt Date: 20180201
  Transmission Date: 20180509
  Serious: Yes (Life-Threatening, Hospitalization)
  Sender: FDA-Public Use
  Company Number: DE-GEHC-2018CSU000417

PATIENT

DRUGS (1)
  1. ACCUPAQUE [Suspect]
     Active Substance: IOHEXOL
     Indication: NEOPLASM
     Dosage: 100 ML, SINGLE
     Route: 042
     Dates: start: 20180126, end: 20180126

REACTIONS (4)
  - Sensation of foreign body [Unknown]
  - Lacrimation increased [Unknown]
  - Rhinorrhoea [Unknown]
  - Dyspnoea [Unknown]

NARRATIVE: CASE EVENT DATE: 20180126
